FAERS Safety Report 24269197 (Version 1)
Quarter: 2024Q3

REPORT INFORMATION
  Report Type: Spontaneous
  Country: RO (occurrence: RO)
  Receive Date: 20240830
  Receipt Date: 20240830
  Transmission Date: 20241017
  Serious: Yes (Death, Other)
  Sender: ALEXION PHARMACEUTICALS
  Company Number: RO-AstraZeneca-CH-00693821A

PATIENT
  Sex: Male
  Weight: 7 kg

DRUGS (1)
  1. SOLIRIS [Suspect]
     Active Substance: ECULIZUMAB
     Indication: Atypical haemolytic uraemic syndrome
     Dosage: 300 MILLIGRAM, Q3W
     Route: 042
     Dates: start: 202312, end: 20240828

REACTIONS (1)
  - Cardio-respiratory arrest [Fatal]
